FAERS Safety Report 9144784 (Version 1)
Quarter: 2013Q1

REPORT INFORMATION
  Report Type: Spontaneous
  Country: CN (occurrence: CN)
  Receive Date: 20130306
  Receipt Date: 20130306
  Transmission Date: 20140127
  Serious: Yes (Disabling, Other)
  Sender: FDA-Public Use
  Company Number: PHHY2009CN08350

PATIENT
  Age: 70 Year
  Sex: Female

DRUGS (4)
  1. VOLTAREN [Suspect]
     Indication: ARTHRALGIA
     Dosage: 75 MG, QD
     Route: 048
     Dates: start: 20090220, end: 20090306
  2. MIACALCIC [Concomitant]
  3. CALCITROL [Concomitant]
  4. CALTRATE WITH VITAMIN D [Concomitant]

REACTIONS (2)
  - Deafness [Recovering/Resolving]
  - Hypoacusis [Unknown]
